FAERS Safety Report 6976945-5 (Version None)
Quarter: 2010Q3

REPORT INFORMATION
  Report Type: 
  Country: None (occurrence: None)
  Receive Date: 20100910
  Receipt Date: 20100831
  Transmission Date: 20110219
  Serious: Yes (Hospitalization, Other)
  Sender: FDA-Public Use
  Company Number: US-ROCHE-709305

PATIENT
  Sex: Female
  Weight: 40.9 kg

DRUGS (13)
  1. BONIVA [Suspect]
     Indication: OSTEOPOROSIS
     Dosage: RECEIVED IT FOR YEARS
     Route: 048
  2. LASIX [Concomitant]
  3. COZAAR [Concomitant]
  4. CRESTOR [Concomitant]
  5. VITAMIN TAB [Concomitant]
  6. ADVAIR DISKUS 100/50 [Concomitant]
     Dosage: 2 PUFFS AS NEEDED
  7. CALCIUM [Concomitant]
  8. ASPIRIN [Concomitant]
     Dosage: ENTERIC-COATED ASPIRIN
  9. PLAVIX [Concomitant]
  10. PEPCID [Concomitant]
     Route: 048
  11. LISINOPRIL [Concomitant]
  12. METOPROLOL TARTRATE [Concomitant]
     Route: 054
  13. ZOCOR [Concomitant]
     Dosage: AT BED TIME
     Route: 048

REACTIONS (7)
  - ABDOMINAL DISCOMFORT [None]
  - ACUTE MYOCARDIAL INFARCTION [None]
  - CACHEXIA [None]
  - HELICOBACTER INFECTION [None]
  - HYPONATRAEMIA [None]
  - OBSTRUCTIVE AIRWAYS DISORDER [None]
  - PULMONARY HYPERTENSION [None]
